FAERS Safety Report 9977767 (Version 2)
Quarter: 2014Q1

REPORT INFORMATION
  Report Type: Report from Study
  Country: US (occurrence: US)
  Receive Date: 20140306
  Receipt Date: 20140306
  Transmission Date: 20141002
  Serious: No
  Sender: FDA-Public Use
  Company Number: US-ABBVIE-13P-163-1146396-00

PATIENT
  Age: 62 Year
  Sex: Female

DRUGS (6)
  1. HUMIRA [Suspect]
     Indication: CROHN^S DISEASE
     Dosage: 40 MG/0.8 ML PEN
     Route: 058
     Dates: start: 20130713
  2. 6MP [Concomitant]
     Indication: CROHN^S DISEASE
  3. TOPROLOL [Concomitant]
     Indication: HEART RATE IRREGULAR
     Dates: start: 2006
  4. LOVASTATIN [Concomitant]
     Indication: HEART RATE IRREGULAR
     Dates: start: 2006
  5. FISH OIL [Concomitant]
     Indication: SUPPLEMENTATION THERAPY
  6. CALCIUM + VITAMIN D [Concomitant]
     Indication: SUPPLEMENTATION THERAPY

REACTIONS (3)
  - Pain [Not Recovered/Not Resolved]
  - Injection site pain [Not Recovered/Not Resolved]
  - Squamous cell carcinoma [Unknown]
